FAERS Safety Report 16038247 (Version 6)
Quarter: 2019Q3

REPORT INFORMATION
  Report Type: Spontaneous
  Country: US (occurrence: US)
  Receive Date: 20190305
  Receipt Date: 20190927
  Transmission Date: 20191004
  Serious: Yes (Death, Other)
  Sender: FDA-Public Use
  Company Number: US-ASTRAZENECA-2018SF26613

PATIENT
  Age: 623 Month
  Sex: Female

DRUGS (44)
  1. PRILOSEC [Suspect]
     Active Substance: OMEPRAZOLE MAGNESIUM
     Indication: GASTROOESOPHAGEAL REFLUX DISEASE
     Route: 048
     Dates: start: 200501, end: 201112
  2. ESTROVEN [Concomitant]
     Active Substance: DIETARY SUPPLEMENT
  3. ASPIRIN. [Concomitant]
     Active Substance: ASPIRIN
  4. FORMOTEROL, MOMETASONE [Concomitant]
  5. ALLEGRA [Concomitant]
     Active Substance: FEXOFENADINE HYDROCHLORIDE
  6. PREVACID [Suspect]
     Active Substance: LANSOPRAZOLE
     Route: 065
  7. TRAMADOL. [Concomitant]
     Active Substance: TRAMADOL
  8. SYNTHROID [Concomitant]
     Active Substance: LEVOTHYROXINE SODIUM
  9. COLACE [Concomitant]
     Active Substance: DOCUSATE SODIUM
  10. GABAPENTIN. [Concomitant]
     Active Substance: GABAPENTIN
  11. FLUTICASONE. [Concomitant]
     Active Substance: FLUTICASONE
  12. ATIVAN [Concomitant]
     Active Substance: LORAZEPAM
  13. TYLENOL [Concomitant]
     Active Substance: ACETAMINOPHEN
  14. PROVENTIL [Concomitant]
     Active Substance: ALBUTEROL
  15. SACCHAROMYCES BOULARDII [Concomitant]
     Active Substance: SACCHAROMYCES CEREVISIAE
  16. ALLOPURINOL. [Concomitant]
     Active Substance: ALLOPURINOL
  17. PREVACID 24 HR [Suspect]
     Active Substance: LANSOPRAZOLE
     Route: 065
  18. PLAVIX [Concomitant]
     Active Substance: CLOPIDOGREL BISULFATE
  19. VANCOMYCIN [Concomitant]
     Active Substance: VANCOMYCIN
  20. NEXIUM 24HR [Suspect]
     Active Substance: ESOMEPRAZOLE MAGNESIUM
     Route: 048
  21. VITAMIN D [Concomitant]
     Active Substance: VITAMIN D NOS
  22. ALLOPURINOL. [Concomitant]
     Active Substance: ALLOPURINOL
  23. MIRALAX [Concomitant]
     Active Substance: POLYETHYLENE GLYCOL 3350
  24. BIOTIN [Concomitant]
     Active Substance: BIOTIN
  25. DUONEB [Concomitant]
     Active Substance: ALBUTEROL SULFATE\IPRATROPIUM BROMIDE
  26. NEPHRO VITE RX [Concomitant]
     Active Substance: ASCORBIC ACID\BIOTIN\CALCIUM PANTOTHENATE\CYANOCOBALAMIN\FOLIC ACID\NIACINAMIDE\PYRIDOXINE HYDROCHLORIDE\RIBOFLAVIN\THIAMINE MONONITRATE
  27. PROTONIX [Concomitant]
     Active Substance: PANTOPRAZOLE SODIUM
  28. ZYRTEC [Concomitant]
     Active Substance: CETIRIZINE HYDROCHLORIDE
  29. ANASTROZOLE. [Concomitant]
     Active Substance: ANASTROZOLE
  30. NEXIUM [Suspect]
     Active Substance: ESOMEPRAZOLE MAGNESIUM
     Route: 048
  31. PRILOSEC [Suspect]
     Active Substance: OMEPRAZOLE MAGNESIUM
     Indication: GASTROOESOPHAGEAL REFLUX DISEASE
     Route: 048
     Dates: start: 20050101, end: 20111231
  32. ANASTROZOLE. [Concomitant]
     Active Substance: ANASTROZOLE
     Route: 065
  33. FLUTICASONE. [Concomitant]
     Active Substance: FLUTICASONE
  34. SPIRIVA [Concomitant]
     Active Substance: TIOTROPIUM BROMIDE MONOHYDRATE
  35. LEVAQUIN [Concomitant]
     Active Substance: LEVOFLOXACIN
  36. PRILOSEC OTC [Suspect]
     Active Substance: OMEPRAZOLE MAGNESIUM
     Indication: GASTROOESOPHAGEAL REFLUX DISEASE
     Route: 048
     Dates: start: 20050101, end: 20111231
  37. RENVELA [Concomitant]
     Active Substance: SEVELAMER CARBONATE
  38. ACETAMINOPHEN. [Concomitant]
     Active Substance: ACETAMINOPHEN
  39. CALCIUM CARBONATE. [Concomitant]
     Active Substance: CALCIUM CARBONATE
  40. ZOFRAN [Concomitant]
     Active Substance: ONDANSETRON HYDROCHLORIDE
  41. ADVAIR DISKUS [Concomitant]
     Active Substance: FLUTICASONE PROPIONATE\SALMETEROL XINAFOATE
  42. PRILOSEC OTC [Suspect]
     Active Substance: OMEPRAZOLE MAGNESIUM
     Indication: GASTROOESOPHAGEAL REFLUX DISEASE
     Route: 048
     Dates: start: 200501, end: 201112
  43. VITAMIN D3 [Concomitant]
     Active Substance: CHOLECALCIFEROL
  44. ARIMIDEX [Concomitant]
     Active Substance: ANASTROZOLE

REACTIONS (6)
  - Sudden cardiac death [Fatal]
  - Renal injury [Unknown]
  - Renal failure [Unknown]
  - Acute kidney injury [Not Recovered/Not Resolved]
  - End stage renal disease [Fatal]
  - Chronic kidney disease [Not Recovered/Not Resolved]

NARRATIVE: CASE EVENT DATE: 201201
